FAERS Safety Report 14413603 (Version 2)
Quarter: 2018Q1

REPORT INFORMATION
  Report Type: Spontaneous
  Country: US (occurrence: US)
  Receive Date: 20180119
  Receipt Date: 20180126
  Transmission Date: 20180509
  Serious: Yes (Life-Threatening, Hospitalization, Other)
  Sender: FDA-Public Use
  Company Number: US-PFIZER INC-2018023855

PATIENT
  Age: 58 Year
  Sex: Female

DRUGS (24)
  1. METHYLENE BLUE. [Suspect]
     Active Substance: METHYLENE BLUE
     Dosage: 50 MG, 4X/DAY (EVERY 6 HOURS)
     Route: 042
  2. LOSARTAN. [Concomitant]
     Active Substance: LOSARTAN
     Indication: HYPERTENSION
     Dosage: 50 MG, DAILY
     Route: 048
  3. MESNA. [Concomitant]
     Active Substance: MESNA
     Dosage: 2500 MG/M2, CYCLIC (OVER 12 HOURS ON DAY 5)
     Route: 042
  4. METOCLOPRAMIDE. [Concomitant]
     Active Substance: METOCLOPRAMIDE
     Indication: NAUSEA
     Dosage: 10 MG, 2X/DAY (AT MEALS AND AT BEDTIME)
     Route: 048
  5. NIFEDIPINE. [Concomitant]
     Active Substance: NIFEDIPINE
     Dosage: 90 MG, 1X/DAY (EVERY EVENING)
  6. PAROXETINE. [Concomitant]
     Active Substance: PAROXETINE
     Indication: GENERALISED ANXIETY DISORDER
     Dosage: 20 MG, DAILY
     Route: 048
  7. NIFEDIPINE. [Concomitant]
     Active Substance: NIFEDIPINE
     Indication: HYPERTENSION
     Dosage: 60 MG, 1X/DAY (EVERY MORNING)
     Route: 048
  8. DOCUSATE PLUS SENNA [Concomitant]
     Active Substance: DOCUSATE SODIUM\SENNOSIDES A AND B
     Indication: CONSTIPATION
     Dosage: UNK, DAILY (50 TO 8.6 MG)
     Route: 048
  9. MESNA. [Concomitant]
     Active Substance: MESNA
     Indication: LEIOMYOSARCOMA RECURRENT
     Dosage: 2500 MG/M2, CYCLIC (OVER 24 HOURS ON DAYS 1 THROUGH 4)
     Route: 042
  10. DEXAMETHASONE. [Concomitant]
     Active Substance: DEXAMETHASONE
     Indication: NAUSEA
     Dosage: 18 MG, DAILY
     Route: 048
  11. PAROXETINE. [Concomitant]
     Active Substance: PAROXETINE
     Indication: DEPRESSION
  12. METOCLOPRAMIDE. [Concomitant]
     Active Substance: METOCLOPRAMIDE
     Indication: VOMITING
  13. IFOSFAMIDE. [Concomitant]
     Active Substance: IFOSFAMIDE
     Dosage: 2000 MG/M2, DAILY (FOR 4 DAYS)
     Route: 042
  14. ONDANSETRON [Suspect]
     Active Substance: ONDANSETRON
     Indication: NAUSEA
     Dosage: 8 MG, 3X/DAY (EVERY 8 HOURS)
     Route: 042
  15. FLUCONAZOLE. [Concomitant]
     Active Substance: FLUCONAZOLE
     Indication: CANDIDA INFECTION
     Dosage: 200 MG, DAILY
     Route: 048
  16. THIAMINE. [Concomitant]
     Active Substance: THIAMINE
     Indication: NEUROTOXICITY
     Dosage: 100 MG, EVERY 4 HRS
     Route: 042
  17. BISACODYL. [Concomitant]
     Active Substance: BISACODYL
     Indication: CONSTIPATION
     Dosage: 5 MG, DAILY
     Route: 048
  18. DOXORUBICIN [Concomitant]
     Active Substance: DOXORUBICIN
     Indication: LEIOMYOSARCOMA RECURRENT
     Dosage: 25 MG/M2, CYCLIC (PER DAY OVER 24 HOURS ON DAYS 1 TO 3)
     Route: 042
  19. CLONIDINE. [Concomitant]
     Active Substance: CLONIDINE
     Indication: HYPERTENSION
     Dosage: 0.2 MG, 2X/DAY
     Route: 048
  20. THIAMINE. [Concomitant]
     Active Substance: THIAMINE
     Indication: PROPHYLAXIS
     Dosage: 100 MG, DAILY
     Route: 048
  21. ONDANSETRON [Suspect]
     Active Substance: ONDANSETRON
     Indication: VOMITING
  22. OXYCODONE [Concomitant]
     Active Substance: OXYCODONE
     Indication: PAIN
     Dosage: 15 MG, 2X/DAY
     Route: 048
  23. DEXAMETHASONE. [Concomitant]
     Active Substance: DEXAMETHASONE
     Indication: VOMITING
  24. IFOSFAMIDE. [Concomitant]
     Active Substance: IFOSFAMIDE
     Indication: LEIOMYOSARCOMA RECURRENT
     Dosage: 2500 MG/M2, CYCLIC (OVER 24 HOURS ON DAYS 1 THROUGH 4)
     Route: 042

REACTIONS (1)
  - Serotonin syndrome [Recovered/Resolved]
